FAERS Safety Report 9027081 (Version 3)
Quarter: 2013Q2

REPORT INFORMATION
  Report Type: Spontaneous
  Country: US (occurrence: US)
  Receive Date: 20130123
  Receipt Date: 20130524
  Transmission Date: 20140414
  Serious: No
  Sender: FDA-Public Use
  Company Number: US-PFIZER INC-2013026546

PATIENT
  Age: 73 Year
  Sex: Female

DRUGS (9)
  1. SUTENT [Suspect]
     Indication: PANCREATIC CARCINOMA
     Dosage: 12.5 MG, UNK
     Dates: start: 20130104
  2. CALCIUM WITH VITAMIN D [Concomitant]
     Dosage: UNK
  3. WARFARIN SODIUM [Concomitant]
     Dosage: UNK
  4. FUROSEMIDE [Concomitant]
     Dosage: UNK
  5. METOPROLOL TARTRATE [Concomitant]
     Dosage: UNK
  6. POTASSIUM [Concomitant]
     Dosage: UNK
  7. REVATIO [Concomitant]
     Dosage: UNK
  8. TYLENOL [Concomitant]
     Dosage: UNK, 8 HOUR
  9. CLINDAMYCIN HYDROCHLORIDE [Concomitant]
     Dosage: UNK

REACTIONS (1)
  - Stomatitis [Unknown]
